FAERS Safety Report 6883071-2 (Version None)
Quarter: 2010Q3

REPORT INFORMATION
  Report Type: 
  Country: None (occurrence: None)
  Receive Date: 20100708
  Receipt Date: 20100316
  Transmission Date: 20110219
  Serious: Yes (Hospitalization, Other)
  Sender: FDA-Public Use
  Company Number: 2010008687

PATIENT
  Age: 55 Year
  Sex: Female
  Weight: 74.8 kg

DRUGS (9)
  1. CHANTIX [Suspect]
     Dosage: ORAL
     Route: 048
     Dates: start: 20091202, end: 20100101
  2. PERCOCET [Concomitant]
  3. PAXIL [Concomitant]
  4. CRESTOR [Concomitant]
  5. PRILOSEC (OMEPRAZOLE) [Concomitant]
  6. LYRICA [Concomitant]
  7. TRAZODONE HCL [Concomitant]
  8. NORCO [Concomitant]
  9. XANAX [Concomitant]

REACTIONS (3)
  - CONVULSION [None]
  - DRUG INEFFECTIVE [None]
  - TREMOR [None]
